FAERS Safety Report 25347448 (Version 1)
Quarter: 2025Q2

REPORT INFORMATION
  Report Type: Spontaneous
  Country: US (occurrence: None)
  Receive Date: 20250522
  Receipt Date: 20250522
  Transmission Date: 20250717
  Serious: Yes (Hospitalization)
  Sender: FDA-CTU
  Company Number: None

PATIENT
  Age: 81 Year
  Sex: Male
  Weight: 75.8 kg

DRUGS (3)
  1. CARBOPLATIN [Suspect]
     Active Substance: CARBOPLATIN
  2. PEMBROLIZUMAB [Concomitant]
     Active Substance: PEMBROLIZUMAB
  3. ALIMTA [Concomitant]
     Active Substance: PEMETREXED DISODIUM

REACTIONS (11)
  - Dyspnoea exertional [None]
  - Dyspnoea [None]
  - Hypoxia [None]
  - Malignant neoplasm progression [None]
  - Metastases to lung [None]
  - Pneumonitis [None]
  - Supraventricular tachycardia [None]
  - Confusional state [None]
  - Hypophagia [None]
  - Dehydration [None]
  - Infection [None]

NARRATIVE: CASE EVENT DATE: 20250505
